FAERS Safety Report 5208212-4 (Version None)
Quarter: 2007Q2

REPORT INFORMATION
  Report Type: 
  Country: None (occurrence: None)
  Receive Date: 20070115
  Receipt Date: 20070110
  Transmission Date: 20071010
  Serious: Yes (Hospitalization)
  Sender: FDA-Public Use
  Company Number: GB-GLAXOSMITHKLINE-B0453946A

PATIENT
  Age: 58 Year
  Sex: Female

DRUGS (2)
  1. AMOXICILLIN + CLAVULANATE POTASSIUM [Suspect]
     Indication: EAR INFECTION
     Route: 048
     Dates: start: 20061106
  2. OMEPRAZOLE [Concomitant]
     Route: 048

REACTIONS (6)
  - ABDOMINAL DISCOMFORT [None]
  - CHEST PAIN [None]
  - FAECES DISCOLOURED [None]
  - JAUNDICE CHOLESTATIC [None]
  - LIVER FUNCTION TEST ABNORMAL [None]
  - PRURITUS [None]
